FAERS Safety Report 7475474-2 (Version None)
Quarter: 2011Q2

REPORT INFORMATION
  Report Type: 
  Country: None (occurrence: None)
  Receive Date: 20110512
  Receipt Date: 20110506
  Transmission Date: 20111010
  Serious: Yes (Death, Other)
  Sender: FDA-Public Use
  Company Number: PHHY2011AU14710

PATIENT

DRUGS (4)
  1. CLOZAPINE [Suspect]
     Indication: SCHIZOPHRENIA
     Dosage: 200 MG, QD
  2. VENLAFAXINE [Concomitant]
  3. VALPROATE SODIUM [Concomitant]
  4. OLANZAPINE [Concomitant]

REACTIONS (4)
  - MYOCARDITIS [None]
  - PYREXIA [None]
  - CORONARY ARTERY STENOSIS [None]
  - UPPER RESPIRATORY TRACT INFECTION [None]
